FAERS Safety Report 5426672-0 (Version None)
Quarter: 2007Q3

REPORT INFORMATION
  Report Type: 
  Country: None (occurrence: None)
  Receive Date: 20070731
  Receipt Date: 20070514
  Transmission Date: 20080115
  Serious: No
  Sender: FDA-Public Use
  Company Number: 2006PV008395

PATIENT
  Age: 69 Year
  Sex: Male
  Weight: 104.3 kg

DRUGS (8)
  1. EXENATIDE(EXENATIDE) PEN, DISPOSABLE [Suspect]
     Indication: TYPE 2 DIABETES MELLITUS
     Dosage: 5  UG, 2/D, SUBCUTANEOUS, 10 UG, 2/D, SUBCUTANEOUS, 5 UG, 2/D, SUBCUTANEOUS, 10 UG, 2/D, SUBCUTANEOU
     Route: 058
     Dates: start: 20060203, end: 20060302
  2. EXENATIDE(EXENATIDE) PEN, DISPOSABLE [Suspect]
     Indication: TYPE 2 DIABETES MELLITUS
     Dosage: 5  UG, 2/D, SUBCUTANEOUS, 10 UG, 2/D, SUBCUTANEOUS, 5 UG, 2/D, SUBCUTANEOUS, 10 UG, 2/D, SUBCUTANEOU
     Route: 058
     Dates: start: 20050901, end: 20061001
  3. EXENATIDE(EXENATIDE) PEN, DISPOSABLE [Suspect]
     Indication: TYPE 2 DIABETES MELLITUS
     Dosage: 5  UG, 2/D, SUBCUTANEOUS, 10 UG, 2/D, SUBCUTANEOUS, 5 UG, 2/D, SUBCUTANEOUS, 10 UG, 2/D, SUBCUTANEOU
     Route: 058
     Dates: start: 20060303
  4. EXENATIDE(EXENATIDE) PEN, DISPOSABLE [Suspect]
     Indication: TYPE 2 DIABETES MELLITUS
     Dosage: 5  UG, 2/D, SUBCUTANEOUS, 10 UG, 2/D, SUBCUTANEOUS, 5 UG, 2/D, SUBCUTANEOUS, 10 UG, 2/D, SUBCUTANEOU
     Route: 058
     Dates: start: 20061001
  5. EXENATIDE(EXENATIDE) PEN, DISPOSABLE [Suspect]
  6. EXENATIDE(EXENATIDE) PEN, DISPOSABLE [Suspect]
  7. GLUCOPHAGE [Concomitant]
  8. GLIPIZIDE [Concomitant]

REACTIONS (4)
  - BLOOD GLUCOSE ABNORMAL [None]
  - BLOOD GLUCOSE INCREASED [None]
  - INJECTION SITE PAIN [None]
  - WEIGHT DECREASED [None]
